FAERS Safety Report 9327145 (Version 4)
Quarter: 2013Q4

REPORT INFORMATION
  Report Type: Spontaneous
  Country: US (occurrence: US)
  Receive Date: 20130604
  Receipt Date: 20131009
  Transmission Date: 20140711
  Serious: No
  Sender: FDA-Public Use
  Company Number: US-PFIZER INC-2013166881

PATIENT
  Age: 77 Year
  Sex: Male

DRUGS (7)
  1. AXITINIB [Suspect]
     Indication: RENAL CELL CARCINOMA
     Dosage: 5 MG, 2X/DAY
     Route: 048
     Dates: start: 20130301, end: 20130314
  2. AXITINIB [Suspect]
     Dosage: 5 MG, 1X/DAY (QD)
     Route: 048
     Dates: start: 20130328, end: 20130415
  3. AXITINIB [Suspect]
     Dosage: 5 MG, 1X/DAY (QD)
     Route: 048
     Dates: start: 20130716
  4. OXYCONTIN [Suspect]
     Indication: PAIN
     Dosage: 10 MG, 2X/DAY
     Route: 048
     Dates: start: 20121012
  5. ZOMETA [Concomitant]
     Indication: METASTASES TO BONE
     Dosage: 4 MG, Q MONTH
     Route: 042
     Dates: start: 20121210
  6. AMLODIPINE [Concomitant]
     Indication: HYPERTENSION
     Dosage: 5 MG, 1X/DAY (QD)
     Route: 048
  7. LASIX [Concomitant]
     Indication: HYPERTENSION
     Dosage: 40 MG, 1X/DAY (QD)
     Route: 048

REACTIONS (3)
  - Dizziness [Recovered/Resolved]
  - Constipation [Recovered/Resolved]
  - Abdominal pain [Not Recovered/Not Resolved]
